FAERS Safety Report 18486194 (Version 1)
Quarter: 2020Q4

REPORT INFORMATION
  Report Type: Report from Study
  Country: JP (occurrence: JP)
  Receive Date: 20201110
  Receipt Date: 20201110
  Transmission Date: 20210114
  Serious: Yes (Death, Hospitalization, Other)
  Sender: FDA-Public Use
  Company Number: JP-SECURA BIO, INC.-2017JP019708

PATIENT

DRUGS (31)
  1. FARYDAK [Suspect]
     Active Substance: PANOBINOSTAT
     Dosage: 15 MG, QD
     Route: 048
     Dates: start: 20151030, end: 20151119
  2. FARYDAK [Suspect]
     Active Substance: PANOBINOSTAT
     Dosage: 10 MG, QD
     Route: 048
     Dates: start: 20160212, end: 20160303
  3. FARYDAK [Suspect]
     Active Substance: PANOBINOSTAT
     Dosage: 10 MG, QD
     Route: 048
     Dates: start: 20160304, end: 20160324
  4. FARYDAK [Suspect]
     Active Substance: PANOBINOSTAT
     Dosage: 10 MG, QD
     Route: 048
     Dates: start: 20160624, end: 20160718
  5. BORTEZOMIB. [Concomitant]
     Active Substance: BORTEZOMIB
     Dosage: 1.3 MG/M2, QW
     Route: 058
     Dates: start: 20151218, end: 20160107
  6. BORTEZOMIB. [Concomitant]
     Active Substance: BORTEZOMIB
     Dosage: 1 MG/M2, QW
     Route: 058
     Dates: start: 20160624, end: 20160718
  7. DEXAMETHASON [DEXAMETHASONE] [Concomitant]
     Active Substance: DEXAMETHASONE
     Indication: PLASMA CELL MYELOMA
     Dosage: UNK
     Route: 065
     Dates: start: 20151008, end: 20160107
  8. BORTEZOMIB. [Concomitant]
     Active Substance: BORTEZOMIB
     Dosage: 1 MG/M2, QW
     Route: 058
     Dates: start: 20160325, end: 20160414
  9. BORTEZOMIB. [Concomitant]
     Active Substance: BORTEZOMIB
     Dosage: 1 MG/M2, QW
     Route: 058
     Dates: start: 20160415, end: 20160513
  10. DEXAMETHASON [DEXAMETHASONE] [Concomitant]
     Active Substance: DEXAMETHASONE
     Dosage: UNK
     Route: 065
     Dates: start: 20160109
  11. PLATELETS [Concomitant]
     Active Substance: HUMAN PLATELET, ALLOGENIC
     Indication: PLASMA CELL MYELOMA
     Dosage: 10 IU, QD
     Route: 041
  12. FARYDAK [Suspect]
     Active Substance: PANOBINOSTAT
     Dosage: 15 MG, QD
     Route: 048
     Dates: start: 20151218, end: 20160107
  13. BORTEZOMIB. [Concomitant]
     Active Substance: BORTEZOMIB
     Dosage: 1 MG/M2, QW
     Route: 058
     Dates: start: 20160212, end: 20160303
  14. BORTEZOMIB. [Concomitant]
     Active Substance: BORTEZOMIB
     Dosage: 1 MG/M2, QW
     Route: 058
     Dates: start: 20160719, end: 20160808
  15. BORTEZOMIB. [Concomitant]
     Active Substance: BORTEZOMIB
     Dosage: 1 MG/M2, QW
     Route: 058
     Dates: start: 20160809
  16. RANMARK [Concomitant]
     Active Substance: DENOSUMAB
     Indication: PLASMA CELL MYELOMA
     Dosage: 120 MG, QD
     Route: 065
  17. FARYDAK [Suspect]
     Active Substance: PANOBINOSTAT
     Indication: PLASMA CELL MYELOMA
     Dosage: 20 MG, QD, (6 DOSES PER CYCLE)
     Route: 048
     Dates: start: 20151008, end: 20151029
  18. BORTEZOMIB. [Concomitant]
     Active Substance: BORTEZOMIB
     Dosage: 1.3 MG/M2, QW
     Route: 058
     Dates: start: 20151120, end: 20151217
  19. ACICLOVIR [Concomitant]
     Active Substance: ACYCLOVIR
     Indication: PRODUCT USED FOR UNKNOWN INDICATION
     Dosage: 200 MG, QD
     Route: 048
     Dates: start: 20151008
  20. FARYDAK [Suspect]
     Active Substance: PANOBINOSTAT
     Dosage: 15 MG, QD
     Route: 048
     Dates: start: 20160109, end: 20160211
  21. FARYDAK [Suspect]
     Active Substance: PANOBINOSTAT
     Dosage: 10 MG, QD
     Route: 048
     Dates: start: 20160325, end: 20160414
  22. FARYDAK [Suspect]
     Active Substance: PANOBINOSTAT
     Dosage: 10 MG, QD
     Route: 048
     Dates: start: 20160415, end: 20160513
  23. FARYDAK [Suspect]
     Active Substance: PANOBINOSTAT
     Dosage: 10 MG, QD
     Route: 048
     Dates: start: 20160514, end: 20160623
  24. BORTEZOMIB. [Concomitant]
     Active Substance: BORTEZOMIB
     Dosage: 1.3 MG/M2, QW
     Route: 058
     Dates: start: 20151030, end: 20151119
  25. BORTEZOMIB. [Concomitant]
     Active Substance: BORTEZOMIB
     Dosage: 1 MG/M2, QW
     Route: 058
     Dates: start: 20160514, end: 20160623
  26. BORTEZOMIB. [Concomitant]
     Active Substance: BORTEZOMIB
     Indication: PLASMA CELL MYELOMA
     Dosage: 1.3 MG/M2, QW
     Route: 058
     Dates: start: 20151008, end: 20151029
  27. FARYDAK [Suspect]
     Active Substance: PANOBINOSTAT
     Dosage: 15 MG, QD
     Route: 048
     Dates: start: 20151120, end: 20151217
  28. FARYDAK [Suspect]
     Active Substance: PANOBINOSTAT
     Dosage: 10 MG, QD
     Route: 048
     Dates: start: 20160719, end: 20160808
  29. FARYDAK [Suspect]
     Active Substance: PANOBINOSTAT
     Dosage: 10 MG, QD
     Route: 048
     Dates: start: 20160809
  30. BORTEZOMIB. [Concomitant]
     Active Substance: BORTEZOMIB
     Dosage: 1 MG/M2, QW
     Route: 058
     Dates: start: 20160304, end: 20160324
  31. RED BLOOD CELLS [Concomitant]
     Active Substance: HUMAN RED BLOOD CELL
     Indication: PLASMA CELL MYELOMA
     Dosage: 2 IU, QD
     Route: 041

REACTIONS (14)
  - Neutrophil count decreased [Unknown]
  - Platelet count decreased [Unknown]
  - Bacteraemia [Recovered/Resolved]
  - Nausea [Unknown]
  - Renal impairment [Recovering/Resolving]
  - Morganella infection [Unknown]
  - Diarrhoea [Recovered/Resolved]
  - White blood cell count decreased [Unknown]
  - Fatigue [Unknown]
  - Plasma cell myeloma [Fatal]
  - Malignant neoplasm progression [Fatal]
  - Pyrexia [Unknown]
  - Anaemia [Not Recovered/Not Resolved]
  - Hepatic function abnormal [Unknown]

NARRATIVE: CASE EVENT DATE: 201510
